FAERS Safety Report 4322564-9 (Version None)
Quarter: 2004Q1

REPORT INFORMATION
  Report Type: 
  Country: None (occurrence: None)
  Receive Date: 20040322
  Receipt Date: 20040322
  Transmission Date: 20041129
  Serious: Yes (Other)
  Sender: FDA-Public Use
  Company Number: None

PATIENT
  Age: 70 Year
  Sex: Male
  Weight: 62.3 kg

DRUGS (13)
  1. AUGMENTIN [Suspect]
  2. DOXYCYLIN HYCLATE [Concomitant]
  3. DIPHENHYDRAMINE HCL [Concomitant]
  4. AMOXICILLIN AND CLAVULANATE POTASSIUM [Concomitant]
  5. LORAZEPAM [Concomitant]
  6. DILTIAZEM [Concomitant]
  7. RABEPRAZOLE SODIUM [Concomitant]
  8. PREDNISONE [Concomitant]
  9. IPRATROPIUM INH [Concomitant]
  10. FOSINOPRIL SODIUM [Concomitant]
  11. FLUTICASONE PROP [Concomitant]
  12. ALBUTEROL SOLN (PREMIX) INHL [Concomitant]
  13. ACETAMINOPHEN [Concomitant]

REACTIONS (1)
  - RASH [None]
